FAERS Safety Report 10049597 (Version 1)
Quarter: 2014Q2

REPORT INFORMATION
  Report Type: Spontaneous
  Country: JP (occurrence: JP)
  Receive Date: 20140401
  Receipt Date: 20140401
  Transmission Date: 20141212
  Serious: Yes (Hospitalization)
  Sender: FDA-Public Use
  Company Number: PHHY2014JP038258

PATIENT
  Age: 74 Year
  Sex: Female

DRUGS (4)
  1. NEORAL [Suspect]
     Indication: GRANULOMATOSIS WITH POLYANGIITIS
     Dosage: 150 MG/ DAY
     Route: 048
  2. NEORAL [Suspect]
     Indication: OFF LABEL USE
  3. PREDNISOLONE [Suspect]
     Indication: GRANULOMATOSIS WITH POLYANGIITIS
     Dosage: 15 MG/ DAY
  4. PREDNISOLONE [Suspect]
     Indication: OFF LABEL USE

REACTIONS (8)
  - Large intestine perforation [Recovered/Resolved]
  - Abscess [Unknown]
  - Flank pain [Unknown]
  - Abdominal tenderness [Unknown]
  - Inflammation [Unknown]
  - Systemic sclerosis [Unknown]
  - C-reactive protein increased [Unknown]
  - Impaired healing [Unknown]
